FAERS Safety Report 7531818-4 (Version None)
Quarter: 2011Q2

REPORT INFORMATION
  Report Type: 
  Country: None (occurrence: None)
  Receive Date: 20110607
  Receipt Date: 20110607
  Transmission Date: 20111010
  Serious: Yes (Hospitalization)
  Sender: FDA-Public Use
  Company Number: None

PATIENT
  Sex: Female
  Weight: 83 kg

DRUGS (1)
  1. TAXOL [Suspect]
     Dosage: 5 MG
     Dates: end: 20110602

REACTIONS (6)
  - HYPOXIA [None]
  - INCOHERENT [None]
  - INCONTINENCE [None]
  - HYPOTENSION [None]
  - CONVULSION [None]
  - INFUSION RELATED REACTION [None]
